FAERS Safety Report 8155862-1 (Version None)
Quarter: 2012Q1

REPORT INFORMATION
  Report Type: 
  Country: None (occurrence: None)
  Receive Date: 20120215
  Receipt Date: 20120201
  Transmission Date: 20120608
  Serious: Yes (Hospitalization, Other)
  Sender: FDA-Public Use
  Company Number: 2012AP000270

PATIENT
  Age: 52 Year
  Sex: Female

DRUGS (7)
  1. LORAZEPAM [Concomitant]
  2. ACETAMINOPHEN [Concomitant]
  3. CLOZAPINE [Suspect]
     Dosage: PO
     Route: 048
     Dates: start: 20120123
  4. CLOZAPINE [Suspect]
     Dosage: PO
     Route: 048
     Dates: start: 20110204, end: 20111213
  5. FOLIC ACID [Concomitant]
  6. PAROXETINE HCL [Suspect]
  7. VALPROATE SODIUM [Concomitant]

REACTIONS (7)
  - DRUG INTERACTION [None]
  - DYSTONIA [None]
  - ANTIPSYCHOTIC DRUG LEVEL ABOVE THERAPEUTIC [None]
  - TOXICITY TO VARIOUS AGENTS [None]
  - LYMPHOCYTE COUNT DECREASED [None]
  - MYOCLONUS [None]
  - NEUTROPENIA [None]
